FAERS Safety Report 16247397 (Version 1)
Quarter: 2019Q2

REPORT INFORMATION
  Report Type: Spontaneous
  Country: US (occurrence: US)
  Receive Date: 20190428
  Receipt Date: 20190428
  Transmission Date: 20190711
  Serious: No
  Sender: FDA-Public Use
  Company Number: US-JNJFOC-20190420579

PATIENT
  Age: 86 Year
  Sex: Female
  Weight: 81.65 kg

DRUGS (1)
  1. TYLENOL REGULAR STRENGTH [Suspect]
     Active Substance: ACETAMINOPHEN
     Indication: MYALGIA
     Dosage: A FEW TIMES A MONTH AS RECOMMENDED DOSE
     Route: 048

REACTIONS (1)
  - Expired product administered [Unknown]
